FAERS Safety Report 4600608-4 (Version None)
Quarter: 2005Q1

REPORT INFORMATION
  Report Type: 
  Country: None (occurrence: None)
  Receive Date: 20050304
  Receipt Date: 20050223
  Transmission Date: 20050727
  Serious: Yes (Hospitalization)
  Sender: FDA-Public Use
  Company Number: 2005037482

PATIENT
  Age: 65 Year
  Sex: Male

DRUGS (5)
  1. GENOTROPIN [Suspect]
     Indication: BODY HEIGHT BELOW NORMAL
     Dosage: 2 MG (5.3 MG, SINGLE INTERVAL:  EVERY DAY), SUBCUTANEOUS
     Route: 058
     Dates: start: 19991204, end: 20030501
  2. ATENOLOL [Concomitant]
  3. INDAPAMIDE [Concomitant]
  4. CLOPIDOGREL BISULFATE [Concomitant]
  5. PIROXICAM BETADEX (PIROXICAM BETADEX) [Concomitant]

REACTIONS (2)
  - AORTIC ANEURYSM [None]
  - TRANSMYOCARDIAL REVASCULARISATION [None]
